FAERS Safety Report 20379762 (Version 13)
Quarter: 2022Q3

REPORT INFORMATION
  Report Type: Report from Study
  Country: CN (occurrence: None)
  Receive Date: 20220126
  Receipt Date: 20220909
  Transmission Date: 20221026
  Serious: Yes (Hospitalization)
  Sender: FDA-Public Use
  Company Number: CN-ROCHE-3004651

PATIENT
  Age: 40 Year
  Sex: Female
  Weight: 95 kg

DRUGS (66)
  1. ATEZOLIZUMAB [Suspect]
     Active Substance: ATEZOLIZUMAB
     Indication: Triple negative breast cancer
     Dosage: ON 28/DEC/2021, SHE RECEIVED MOST RECENT DOSE OF BLINDED ATEZOLIZUMAB PRIOR TO THE AE OR SAE?ON 02/D
     Route: 041
     Dates: start: 20210928
  2. GEMCITABINE [Suspect]
     Active Substance: GEMCITABINE
     Indication: Triple negative breast cancer
     Dosage: ON 05/JAN/2022, SHE RECEIVED MOST RECENT DOSE OF GEMCITABINE 500 MG PRIOR TO THE AE OR SAE.
     Route: 042
     Dates: start: 20210928
  3. CARBOPLATIN [Suspect]
     Active Substance: CARBOPLATIN
     Indication: Triple negative breast cancer
     Dosage: (AUC) 2 MG/ML/MIN?ON 28/DEC/2021, SHE RECEIVED MOST RECENT DOSE OF CARBOPLATIN 290 MG PRIOR TO THE A
     Route: 042
     Dates: start: 20210928
  4. BICYCLOL [Concomitant]
     Active Substance: BICYCLOL
     Route: 065
     Dates: start: 20211018, end: 20211107
  5. RECOMBINANT HUMAN GRANULOCYTE STIMULATING FACTOR (UNK INGREDIENTS) [Concomitant]
     Dates: start: 20211221, end: 20211221
  6. RECOMBINANT HUMAN GRANULOCYTE STIMULATING FACTOR (UNK INGREDIENTS) [Concomitant]
     Dates: start: 20220328, end: 20220328
  7. RECOMBINANT HUMAN GRANULOCYTE STIMULATING FACTOR (UNK INGREDIENTS) [Concomitant]
     Dates: start: 20220307, end: 20220307
  8. THROMBOPOIETIN [Concomitant]
     Active Substance: THROMBOPOIETIN
     Dates: start: 20211221, end: 20211221
  9. THROMBOPOIETIN [Concomitant]
     Active Substance: THROMBOPOIETIN
     Dates: start: 20220114, end: 20220115
  10. POTASSIUM CHLORIDE EXTENDED RELEASE [Concomitant]
     Active Substance: POTASSIUM CHLORIDE
     Route: 065
     Dates: start: 20220115, end: 20220204
  11. IMIPENEM AND CILASTATIN SODIUM [Concomitant]
     Active Substance: CILASTATIN SODIUM\IMIPENEM
     Route: 065
     Dates: start: 20220115, end: 20220116
  12. DYPHYLLINE [Concomitant]
     Active Substance: DYPHYLLINE
     Route: 065
     Dates: start: 20220116, end: 20220116
  13. AMBROXOL HYDROCHLORIDE [Concomitant]
     Active Substance: AMBROXOL HYDROCHLORIDE
     Route: 065
     Dates: start: 20220115, end: 20220116
  14. VITAMIN C [Concomitant]
     Active Substance: ASCORBIC ACID
     Dates: start: 20220114, end: 20220116
  15. VITAMIN B6 [Concomitant]
     Active Substance: PYRIDOXINE HYDROCHLORIDE
     Dates: start: 20220114, end: 20220116
  16. INSULIN NOS [Concomitant]
     Active Substance: INSULIN NOS
     Dates: start: 20220114, end: 20220116
  17. INSULIN NOS [Concomitant]
     Active Substance: INSULIN NOS
     Dates: start: 20220412, end: 20220412
  18. FLUCONAZOLE [Concomitant]
     Active Substance: FLUCONAZOLE
     Dates: start: 20220114, end: 20220116
  19. OMEPRAZOLE SODIUM [Concomitant]
     Active Substance: OMEPRAZOLE SODIUM
     Dates: start: 20220114, end: 20220116
  20. OMEPRAZOLE SODIUM [Concomitant]
     Active Substance: OMEPRAZOLE SODIUM
     Dates: start: 20211228, end: 20211228
  21. OMEPRAZOLE SODIUM [Concomitant]
     Active Substance: OMEPRAZOLE SODIUM
     Dates: start: 20220105, end: 20220105
  22. OMEPRAZOLE SODIUM [Concomitant]
     Active Substance: OMEPRAZOLE SODIUM
     Dates: start: 20220207, end: 20220207
  23. OMEPRAZOLE SODIUM [Concomitant]
     Active Substance: OMEPRAZOLE SODIUM
     Dates: start: 20220215, end: 20220215
  24. OMEPRAZOLE SODIUM [Concomitant]
     Active Substance: OMEPRAZOLE SODIUM
     Dates: start: 20220301, end: 20220301
  25. OMEPRAZOLE SODIUM [Concomitant]
     Active Substance: OMEPRAZOLE SODIUM
     Dates: start: 20220322, end: 20220322
  26. OMEPRAZOLE SODIUM [Concomitant]
     Active Substance: OMEPRAZOLE SODIUM
     Dates: start: 20220330, end: 20220330
  27. OMEPRAZOLE SODIUM [Concomitant]
     Active Substance: OMEPRAZOLE SODIUM
     Dates: start: 20220412, end: 20220412
  28. OMEPRAZOLE SODIUM [Concomitant]
     Active Substance: OMEPRAZOLE SODIUM
     Dates: start: 20220505, end: 20220505
  29. OMEPRAZOLE SODIUM [Concomitant]
     Active Substance: OMEPRAZOLE SODIUM
     Dates: start: 20220526, end: 20220526
  30. OMEPRAZOLE SODIUM [Concomitant]
     Active Substance: OMEPRAZOLE SODIUM
     Dates: start: 20220602, end: 20220602
  31. OMEPRAZOLE SODIUM [Concomitant]
     Active Substance: OMEPRAZOLE SODIUM
     Dates: start: 20220624, end: 20220624
  32. POTASSIUM CHLORIDE [Concomitant]
     Active Substance: POTASSIUM CHLORIDE
     Dates: start: 20220114, end: 20220114
  33. TROPISETRON [Concomitant]
     Active Substance: TROPISETRON
     Dates: start: 20210928, end: 20210928
  34. TROPISETRON [Concomitant]
     Active Substance: TROPISETRON
     Dates: start: 20211008, end: 20211008
  35. TROPISETRON [Concomitant]
     Active Substance: TROPISETRON
     Dates: start: 20211021, end: 20211021
  36. TROPISETRON [Concomitant]
     Active Substance: TROPISETRON
     Dates: start: 20211028, end: 20211028
  37. TROPISETRON [Concomitant]
     Active Substance: TROPISETRON
     Dates: start: 20211111, end: 20211111
  38. TROPISETRON [Concomitant]
     Active Substance: TROPISETRON
     Dates: start: 20211202, end: 20211202
  39. TROPISETRON [Concomitant]
     Active Substance: TROPISETRON
     Dates: start: 20211210, end: 20211210
  40. TROPISETRON [Concomitant]
     Active Substance: TROPISETRON
     Dates: start: 20211228, end: 20211228
  41. TROPISETRON [Concomitant]
     Active Substance: TROPISETRON
     Dates: start: 20220207, end: 20220207
  42. TROPISETRON [Concomitant]
     Active Substance: TROPISETRON
     Dates: start: 20220215, end: 20220215
  43. TROPISETRON [Concomitant]
     Active Substance: TROPISETRON
     Dates: start: 20220301, end: 20220301
  44. TROPISETRON [Concomitant]
     Active Substance: TROPISETRON
     Dates: start: 20220322, end: 20220322
  45. TROPISETRON [Concomitant]
     Active Substance: TROPISETRON
     Dates: start: 20220330, end: 20220330
  46. TROPISETRON [Concomitant]
     Active Substance: TROPISETRON
     Dates: start: 20220412, end: 20220412
  47. TROPISETRON [Concomitant]
     Active Substance: TROPISETRON
     Dates: start: 20220505, end: 20220505
  48. TROPISETRON [Concomitant]
     Active Substance: TROPISETRON
     Dates: start: 20220526, end: 20220526
  49. TROPISETRON [Concomitant]
     Active Substance: TROPISETRON
     Dates: start: 20220602, end: 20220602
  50. TROPISETRON [Concomitant]
     Active Substance: TROPISETRON
     Dates: start: 20220624, end: 20220624
  51. METOPRAMIDE [Concomitant]
     Dates: start: 20210929, end: 20210929
  52. APREPITANT [Concomitant]
     Active Substance: APREPITANT
     Dates: start: 20211111, end: 20211113
  53. APREPITANT [Concomitant]
     Active Substance: APREPITANT
     Dates: start: 20211202, end: 20211204
  54. APREPITANT [Concomitant]
     Active Substance: APREPITANT
     Dates: start: 20211210, end: 20211212
  55. APREPITANT [Concomitant]
     Active Substance: APREPITANT
     Dates: start: 20211210, end: 20211210
  56. APREPITANT [Concomitant]
     Active Substance: APREPITANT
     Dates: start: 20211227, end: 20211229
  57. APREPITANT [Concomitant]
     Active Substance: APREPITANT
     Dates: start: 20220207, end: 20220209
  58. APREPITANT [Concomitant]
     Active Substance: APREPITANT
     Dates: start: 20220215, end: 20220217
  59. APREPITANT [Concomitant]
     Active Substance: APREPITANT
     Dates: start: 20220301, end: 20220303
  60. APREPITANT [Concomitant]
     Active Substance: APREPITANT
     Dates: start: 20220322, end: 20220324
  61. APREPITANT [Concomitant]
     Active Substance: APREPITANT
     Dates: start: 20220330, end: 20220401
  62. APREPITANT [Concomitant]
     Active Substance: APREPITANT
     Dates: start: 20220412, end: 20220414
  63. APREPITANT [Concomitant]
     Active Substance: APREPITANT
     Dates: start: 20220526, end: 20220528
  64. CIMETIDINE [Concomitant]
     Active Substance: CIMETIDINE
     Dates: start: 20211111, end: 20211111
  65. CIMETIDINE [Concomitant]
     Active Substance: CIMETIDINE
     Dates: start: 20211118, end: 20211118
  66. RAMOSETRON HYDROCHLORIDE [Concomitant]
     Active Substance: RAMOSETRON HYDROCHLORIDE
     Dates: start: 20211118, end: 20211118

REACTIONS (1)
  - Myelosuppression [Recovered/Resolved]

NARRATIVE: CASE EVENT DATE: 20220113
